FAERS Safety Report 8046396-3 (Version None)
Quarter: 2012Q1

REPORT INFORMATION
  Report Type: 
  Country: None (occurrence: None)
  Receive Date: 20120113
  Receipt Date: 20120106
  Transmission Date: 20120608
  Serious: Yes (Other)
  Sender: FDA-Public Use
  Company Number: US-PFIZER INC-2012004874

PATIENT
  Sex: Female
  Weight: 90.7 kg

DRUGS (2)
  1. PREMARIN [Suspect]
     Indication: HYSTERECTOMY
     Dosage: 1.25 MG, 1X/DAY
     Route: 048
     Dates: start: 19850101
  2. NEURONTIN [Suspect]
     Indication: NECK INJURY

REACTIONS (1)
  - ARRHYTHMIA [None]
